FAERS Safety Report 7052488-8 (Version None)
Quarter: 2010Q4

REPORT INFORMATION
  Report Type: 
  Country: None (occurrence: None)
  Receive Date: 20101014
  Receipt Date: 20100929
  Transmission Date: 20110411
  Serious: Yes (Hospitalization)
  Sender: FDA-Public Use
  Company Number: AUR-APL-2010-02496

PATIENT
  Age: 76 Year
  Sex: Female
  Weight: 60.33 kg

DRUGS (7)
  1. HYDROCHLOROTHIAZIDE [Suspect]
     Dosage: 25MG, DAILY
  2. LISINOPRIL [Suspect]
     Dosage: 40MG, DAILY
  3. NORVASC [Suspect]
     Dosage: 10MG, DAILY
  4. ARIMIDEX [Suspect]
     Indication: BREAST CANCER
     Dosage: 1MG, DAILY
     Dates: start: 20051213, end: 20100804
  5. SPIRIVA [Suspect]
     Dosage: 1 PUFF, DAILY
  6. EFFEXOR XR [Suspect]
     Dosage: 150MG, DAILY
  7. FORTEO [Suspect]
     Dosage: 20UG, DAILY, SQ
     Route: 058

REACTIONS (10)
  - BUNDLE BRANCH BLOCK LEFT [None]
  - CARDIAC FAILURE CONGESTIVE [None]
  - CARDIOMYOPATHY [None]
  - DYSPNOEA EXERTIONAL [None]
  - HYPOKALAEMIA [None]
  - HYPONATRAEMIA [None]
  - MYOCARDIAL ISCHAEMIA [None]
  - NASOPHARYNGITIS [None]
  - SINUS TACHYCARDIA [None]
  - TROPONIN I INCREASED [None]
